FAERS Safety Report 8417079-2 (Version None)
Quarter: 2012Q2

REPORT INFORMATION
  Report Type: 
  Country: None (occurrence: None)
  Receive Date: 20120606
  Receipt Date: 20120529
  Transmission Date: 20120825
  Serious: Yes (Other)
  Sender: FDA-Public Use
  Company Number: DE-ELI_LILLY_AND_COMPANY-DE201205009914

PATIENT
  Sex: Female

DRUGS (4)
  1. DIPYRONE TAB [Concomitant]
  2. PREDNISOLONE [Concomitant]
  3. FORTEO [Suspect]
     Indication: OSTEOPOROSIS
     Dosage: UNK, QD
     Route: 058
     Dates: start: 20120427, end: 20120505
  4. MORPHINE [Concomitant]

REACTIONS (2)
  - PAIN IN EXTREMITY [None]
  - ARRHYTHMIA [None]
